FAERS Safety Report 9964368 (Version 2)
Quarter: 2014Q2

REPORT INFORMATION
  Report Type: Spontaneous
  Country: US (occurrence: US)
  Receive Date: 20140305
  Receipt Date: 20140415
  Transmission Date: 20141212
  Serious: Yes (Other)
  Sender: FDA-Public Use
  Company Number: US-PFIZER INC-2014062909

PATIENT
  Age: 79 Year
  Sex: Male

DRUGS (1)
  1. TIKOSYN [Suspect]
     Dosage: UNK
     Dates: start: 201311

REACTIONS (1)
  - Basal cell carcinoma [Unknown]
